FAERS Safety Report 16809222 (Version 1)
Quarter: 2019Q3

REPORT INFORMATION
  Report Type: Spontaneous
  Country: KR (occurrence: KR)
  Receive Date: 20190916
  Receipt Date: 20190916
  Transmission Date: 20191005
  Serious: Yes (Other)
  Sender: FDA-Public Use
  Company Number: PHHY2019KR212173

PATIENT

DRUGS (8)
  1. MYCOPHENOLATE MOFETIL. [Suspect]
     Active Substance: MYCOPHENOLATE MOFETIL
     Indication: LIVER TRANSPLANT
     Dosage: 750 MG, BID
     Route: 065
  2. METHYLPREDNISOLONE. [Suspect]
     Active Substance: METHYLPREDNISOLONE
     Dosage: 8 MG, BID (FOR 1 MONTH STARTING ON POSTOPERATIVE DAY 8)
     Route: 042
  3. MYCOPHENOLATE MOFETIL. [Suspect]
     Active Substance: MYCOPHENOLATE MOFETIL
     Indication: IMMUNOSUPPRESSANT DRUG THERAPY
  4. METHYLPREDNISOLONE. [Suspect]
     Active Substance: METHYLPREDNISOLONE
     Indication: LIVER TRANSPLANT
     Dosage: 500 MG, QD  (DURING THE ANHEPATIC PHASE AND DAILY UNTIL POSTOPERATIVE DAY 2)
     Route: 042
  5. TACROLIMUS. [Suspect]
     Active Substance: TACROLIMUS
     Indication: IMMUNOSUPPRESSANT DRUG THERAPY
  6. METHYLPREDNISOLONE. [Suspect]
     Active Substance: METHYLPREDNISOLONE
     Dosage: 4 MG, BID FOR 2 MONTHS
     Route: 042
  7. METHYLPREDNISOLONE. [Suspect]
     Active Substance: METHYLPREDNISOLONE
     Indication: IMMUNOSUPPRESSANT DRUG THERAPY
     Dosage: 60 MG, QD (FOR 5D DAYS)
     Route: 042
  8. TACROLIMUS. [Suspect]
     Active Substance: TACROLIMUS
     Indication: LIVER TRANSPLANT
     Dosage: INITIATED ON POSTOPERATIVE DAY 3
     Route: 065

REACTIONS (3)
  - Cytomegalovirus infection [Unknown]
  - Lung disorder [Unknown]
  - Product use in unapproved indication [Unknown]
